FAERS Safety Report 26144736 (Version 1)
Quarter: 2025Q4

REPORT INFORMATION
  Report Type: Spontaneous
  Country: US (occurrence: US)
  Receive Date: 20251211
  Receipt Date: 20251211
  Transmission Date: 20260118
  Serious: No
  Sender: CELLTRION
  Company Number: US-CELLTRION INC.-2025US003563

PATIENT

DRUGS (1)
  1. TRUXIMA [Suspect]
     Active Substance: RITUXIMAB-ABBS
     Indication: Pancreatic carcinoma
     Dosage: 800 MG EVERY 21 DAYS FOR 4 CYCLES
     Dates: start: 20250130

REACTIONS (1)
  - Off label use [Unknown]
